FAERS Safety Report 21528457 (Version 2)
Quarter: 2023Q1

REPORT INFORMATION
  Report Type: Spontaneous
  Country: JP (occurrence: JP)
  Receive Date: 20221031
  Receipt Date: 20230123
  Transmission Date: 20230417
  Serious: Yes (Other)
  Sender: FDA-Public Use
  Company Number: JP-TAKEDA-2022TJP076130

PATIENT

DRUGS (1)
  1. ZEJULA [Suspect]
     Active Substance: NIRAPARIB
     Indication: Malignant peritoneal neoplasm
     Dosage: 200 MILLIGRAM, QD
     Route: 048

REACTIONS (1)
  - Malignant peritoneal neoplasm [Unknown]
